FAERS Safety Report 15284273 (Version 3)
Quarter: 2018Q4

REPORT INFORMATION
  Report Type: Spontaneous
  Country: PL (occurrence: PL)
  Receive Date: 20180816
  Receipt Date: 20181101
  Transmission Date: 20190204
  Serious: Yes (Other)
  Sender: FDA-Public Use
  Company Number: PL-REGENERON PHARMACEUTICALS, INC.-2018-33402

PATIENT

DRUGS (3)
  1. EYLEA [Suspect]
     Active Substance: AFLIBERCEPT
     Indication: MACULAR DEGENERATION
     Dosage: TOTAL OF 2 DOSES PRIOR TO EVENT ON LEFT EYE AND ONE DOSE ON RIGHT EYE
     Dates: start: 2014
  2. EYLEA [Suspect]
     Active Substance: AFLIBERCEPT
     Dosage: UNK, ONCE, LEFT EYE, LAST INJECTION
     Dates: start: 20140309, end: 20140309
  3. AVASTIN [Concomitant]
     Active Substance: BEVACIZUMAB
     Indication: PRODUCT USED FOR UNKNOWN INDICATION
     Dosage: RIGHT EYE
     Route: 031

REACTIONS (8)
  - Retinal scar [Unknown]
  - Retinal pigment epitheliopathy [Unknown]
  - Detachment of retinal pigment epithelium [Unknown]
  - Inappropriate schedule of product administration [Unknown]
  - Visual field defect [Unknown]
  - Retinal haemorrhage [Unknown]
  - Eye injury [Unknown]
  - Visual impairment [Unknown]

NARRATIVE: CASE EVENT DATE: 2014
